FAERS Safety Report 9996509 (Version 1)
Quarter: 2014Q1

REPORT INFORMATION
  Report Type: Spontaneous
  Country: JP (occurrence: JP)
  Receive Date: 20140311
  Receipt Date: 20140311
  Transmission Date: 20141002
  Serious: Yes (Hospitalization, Other)
  Sender: FDA-Public Use
  Company Number: PHHY2014JP024828

PATIENT
  Age: 69 Year
  Sex: Male

DRUGS (3)
  1. OXALIPLATIN [Suspect]
     Indication: METASTASIS
     Dates: start: 20070301
  2. FOLINIC ACID [Suspect]
     Indication: METASTASIS
     Dates: start: 20070301
  3. 5-FLUOROURACIL [Suspect]
     Indication: METASTASIS
     Dates: start: 20070301

REACTIONS (6)
  - Interstitial lung disease [Recovering/Resolving]
  - Rash generalised [Recovering/Resolving]
  - Cough [Recovering/Resolving]
  - Chest X-ray abnormal [Recovering/Resolving]
  - Pyrexia [Recovering/Resolving]
  - Neutropenia [Recovering/Resolving]
